FAERS Safety Report 24453342 (Version 2)
Quarter: 2025Q1

REPORT INFORMATION
  Report Type: Spontaneous
  Country: US (occurrence: US)
  Receive Date: 20241017
  Receipt Date: 20250221
  Transmission Date: 20250409
  Serious: No
  Sender: SUNOVION
  Company Number: US-SMPA-202407-URV-000994AA

PATIENT

DRUGS (1)
  1. GEMTESA [Suspect]
     Active Substance: VIBEGRON
     Indication: Pollakiuria
     Dosage: 75 MG, HS, TAKES THE MEDICATION AT NIGHT, WITH OR WITHOUT FOOD
     Route: 048

REACTIONS (2)
  - Pelvic pain [Unknown]
  - Adverse drug reaction [Unknown]
